FAERS Safety Report 14607301 (Version 1)
Quarter: 2018Q1

REPORT INFORMATION
  Report Type: Spontaneous
  Country: US (occurrence: US)
  Receive Date: 20180307
  Receipt Date: 20180307
  Transmission Date: 20180509
  Serious: No
  Sender: FDA-Public Use
  Company Number: US-PFIZER INC-2018093154

PATIENT
  Sex: Female
  Weight: 71.2 kg

DRUGS (1)
  1. PANTOPRAZOLE [Suspect]
     Active Substance: PANTOPRAZOLE
     Dosage: 40 MG, 2X/DAY
     Route: 048
     Dates: end: 201711

REACTIONS (4)
  - Abdominal pain upper [Unknown]
  - Drug intolerance [Unknown]
  - Muscle spasms [Unknown]
  - Drug ineffective [Unknown]
